FAERS Safety Report 16593087 (Version 1)
Quarter: 2019Q3

REPORT INFORMATION
  Report Type: Spontaneous
  Country: FR (occurrence: FR)
  Receive Date: 20190718
  Receipt Date: 20190718
  Transmission Date: 20191004
  Serious: Yes (Hospitalization)
  Sender: FDA-Public Use
  Company Number: FR-TEVA-2019-FR-1077324

PATIENT
  Age: 62 Year
  Sex: Female
  Weight: 45 kg

DRUGS (4)
  1. ESCITALOPRAM [Suspect]
     Active Substance: ESCITALOPRAM OXALATE
     Dosage: 140 MILLIGRAM
     Route: 048
     Dates: start: 20181223, end: 20181223
  2. DOLIPRANE [Suspect]
     Active Substance: ACETAMINOPHEN
     Dosage: 4 GRAM
     Route: 048
     Dates: start: 20181223, end: 20181223
  3. AERIUS (DESLORATADINE) [Suspect]
     Active Substance: DESLORATADINE
     Dosage: 35 MILLIGRAM
     Route: 048
     Dates: start: 20181223, end: 20181223
  4. LEXOMIL ROCHE [Suspect]
     Active Substance: BROMAZEPAM
     Dosage: 30 DOSAGE FORMS
     Route: 048
     Dates: start: 20181223, end: 20181223

REACTIONS (3)
  - Poisoning deliberate [Recovered/Resolved with Sequelae]
  - Hypotension [Recovered/Resolved]
  - Coma [Recovered/Resolved]

NARRATIVE: CASE EVENT DATE: 20181223
